FAERS Safety Report 8428684-1 (Version None)
Quarter: 2012Q2

REPORT INFORMATION
  Report Type: 
  Country: None (occurrence: None)
  Receive Date: 20120605
  Receipt Date: 20120521
  Transmission Date: 20120825
  Serious: Yes (Hospitalization, Disabling)
  Sender: FDA-Public Use
  Company Number: 2012P1030160

PATIENT
  Age: 68 Year
  Sex: Female
  Weight: 92.5338 kg

DRUGS (6)
  1. FENTANYL-50 [Suspect]
     Indication: BACK DISORDER
     Dosage: 1 PATCH, Q72H, TDER
     Route: 062
     Dates: start: 20110501
  2. FENTANYL-50 [Suspect]
     Indication: BACK DISORDER
     Dosage: 1 PATCH, Q72H, TDER
     Route: 062
     Dates: start: 20090401, end: 20090101
  3. CLONIDINE HCL [Concomitant]
  4. SYNTHROID [Concomitant]
  5. LOSARTAN POTASSIUM [Concomitant]
  6. POTASSIUM ACETATE [Concomitant]

REACTIONS (7)
  - DYSSTASIA [None]
  - PRODUCT ADHESION ISSUE [None]
  - SENSATION OF PRESSURE [None]
  - PRODUCT QUALITY ISSUE [None]
  - DRUG EFFECT DECREASED [None]
  - NEURALGIA [None]
  - PAIN [None]
